FAERS Safety Report 17152543 (Version 1)
Quarter: 2019Q4

REPORT INFORMATION
  Report Type: Spontaneous
  Country: US (occurrence: US)
  Receive Date: 20191213
  Receipt Date: 20191213
  Transmission Date: 20200122
  Serious: No
  Sender: FDA-Public Use
  Company Number: US-NOVOPROD-665769

PATIENT
  Sex: Female

DRUGS (4)
  1. LEVEMIR [Suspect]
     Active Substance: INSULIN DETEMIR
     Dosage: 40 UNITS
     Route: 058
     Dates: start: 20190414
  2. LEVEMIR [Suspect]
     Active Substance: INSULIN DETEMIR
     Dosage: 34 UNITS
     Route: 058
     Dates: start: 20190330
  3. LEVEMIR [Suspect]
     Active Substance: INSULIN DETEMIR
     Dosage: 44 UNITS
     Route: 058
     Dates: start: 20190501
  4. LEVEMIR [Suspect]
     Active Substance: INSULIN DETEMIR
     Indication: DIABETES MELLITUS
     Dosage: 30 UNITS
     Route: 058
     Dates: start: 20190309

REACTIONS (10)
  - Burning sensation [Unknown]
  - Injection site erythema [Recovered/Resolved]
  - Injection site pruritus [Unknown]
  - Hypoaesthesia [Unknown]
  - Lip erythema [Unknown]
  - Joint swelling [Unknown]
  - Injection site mass [Unknown]
  - Injection site urticaria [Unknown]
  - Paraesthesia [Unknown]
  - Peripheral swelling [Not Recovered/Not Resolved]

NARRATIVE: CASE EVENT DATE: 2019
